FAERS Safety Report 8503364-2 (Version None)
Quarter: 2012Q3

REPORT INFORMATION
  Report Type: 
  Country: None (occurrence: None)
  Receive Date: 20120702
  Receipt Date: 20120618
  Transmission Date: 20120928
  Serious: Yes (Hospitalization, Other)
  Sender: FDA-Public Use
  Company Number: EU-2012-10115

PATIENT
  Sex: Male

DRUGS (2)
  1. SAMSCA [Suspect]
     Indication: INAPPROPRIATE ANTIDIURETIC HORMONE SECRETION
     Dosage: 15 MILLIGRAM(S), QD, 45 MILLIGRAM(S)
  2. TOPOTECAN [Suspect]

REACTIONS (6)
  - DRUG INEFFECTIVE [None]
  - DISORIENTATION [None]
  - MEDICATION ERROR [None]
  - SOMNOLENCE [None]
  - HYPONATRAEMIA [None]
  - CONFUSIONAL STATE [None]
